FAERS Safety Report 8900962 (Version 3)
Quarter: 2013Q1

REPORT INFORMATION
  Report Type: Spontaneous
  Country: US (occurrence: US)
  Receive Date: 20121109
  Receipt Date: 20130218
  Transmission Date: 20140127
  Serious: Yes (Death, Other)
  Sender: FDA-Public Use
  Company Number: US-ROCHE-1151521

PATIENT
  Sex: Female

DRUGS (6)
  1. XOLAIR [Suspect]
     Indication: ASTHMA
     Route: 065
     Dates: start: 20111128, end: 201211
  2. XOLAIR [Suspect]
     Route: 065
     Dates: start: 20121128
  3. CETIRIZINE [Concomitant]
  4. ADVAIR [Concomitant]
     Indication: ASTHMA
     Dosage: 2 PUFFS
     Route: 065
  5. FEXOFENADINE [Concomitant]
     Indication: RHINITIS
     Route: 048
  6. XOPENEX HFA [Concomitant]
     Indication: ASTHMA
     Dosage: 2-4 PUFFS
     Route: 065

REACTIONS (6)
  - Sudden death [Fatal]
  - Eye pruritus [Unknown]
  - Nasal congestion [Unknown]
  - Throat tightness [Unknown]
  - Chest discomfort [Unknown]
  - Angioedema [Unknown]
